FAERS Safety Report 16565325 (Version 1)
Quarter: 2019Q3

REPORT INFORMATION
  Report Type: Spontaneous
  Country: US (occurrence: US)
  Receive Date: 20190711
  Receipt Date: 20190711
  Transmission Date: 20191004
  Serious: No
  Sender: FDA-Public Use
  Company Number: None

PATIENT
  Age: 10 Year
  Sex: Male
  Weight: 90 kg

DRUGS (1)
  1. CARE ONE IBUPROFEN CHILDRENS [Suspect]
     Active Substance: IBUPROFEN
     Indication: FOOT FRACTURE
     Dosage: ?          QUANTITY:1 TEASPOON(S);?
     Route: 048
     Dates: start: 20190710, end: 20190711

REACTIONS (1)
  - Sudden onset of sleep [None]

NARRATIVE: CASE EVENT DATE: 20190711
